FAERS Safety Report 4865081-X (Version None)
Quarter: 2005Q4

REPORT INFORMATION
  Report Type: 
  Country: None (occurrence: None)
  Receive Date: 20051220
  Receipt Date: 20051220
  Transmission Date: 20060501
  Serious: Yes (Hospitalization)
  Sender: FDA-Public Use
  Company Number: None

PATIENT
  Sex: Female
  Weight: 82.9 kg

DRUGS (4)
  1. HEPARIN [Suspect]
     Indication: ATRIAL FIBRILLATION
     Dosage: DRIP CON^T IV DRIP
     Route: 041
  2. HEPARIN [Suspect]
     Indication: ATRIAL FLUTTER
     Dosage: DRIP CON^T IV DRIP
     Route: 041
  3. WARFARIN [Suspect]
     Indication: ATRIAL FIBRILLATION
     Dosage: 3 MG DAILY X 3 DAYS PO
     Route: 048
  4. WARFARIN [Suspect]
     Indication: ATRIAL FLUTTER
     Dosage: 3 MG DAILY X 3 DAYS PO
     Route: 048

REACTIONS (1)
  - RETROPERITONEAL HAEMATOMA [None]
